FAERS Safety Report 6121979-6 (Version None)
Quarter: 2009Q1

REPORT INFORMATION
  Report Type: 
  Country: None (occurrence: None)
  Receive Date: 20090316
  Receipt Date: 20090305
  Transmission Date: 20090719
  Serious: Yes (Other)
  Sender: FDA-Public Use
  Company Number: CLOF-1000471

PATIENT

DRUGS (5)
  1. CLOLAR [Suspect]
     Indication: HAEMATOLOGICAL MALIGNANCY
     Dosage: QDX5 DAYS-6 TO -2, INTRAVENOUS
     Route: 042
  2. BUSULFAN (BUSULFAN) [Suspect]
     Indication: HAEMATOLOGICAL MALIGNANCY
     Dosage: 3.2 MG/KG, QDX4 DAYS -5 TO -2, INTRAVENOUS
     Route: 042
  3. DEXAMETHASONE [Concomitant]
  4. TACROLIMUS [Concomitant]
  5. MYCOPHENOLATE MOFETIL [Concomitant]

REACTIONS (1)
  - LEFT VENTRICULAR DYSFUNCTION [None]
